FAERS Safety Report 23242434 (Version 2)
Quarter: 2024Q1

REPORT INFORMATION
  Report Type: Spontaneous
  Country: ES (occurrence: ES)
  Receive Date: 20231129
  Receipt Date: 20240219
  Transmission Date: 20240409
  Serious: Yes (Hospitalization)
  Sender: FDA-Public Use
  Company Number: ES-ESTEVE-2023-02851

PATIENT
  Age: 62 Year
  Sex: Male

DRUGS (14)
  1. MORPHINE SULFATE [Suspect]
     Active Substance: MORPHINE SULFATE
     Indication: Cancer pain
     Dosage: 0.5 MG/ DAY
     Route: 065
     Dates: start: 20230118, end: 20230120
  2. MORPHINE SULFATE [Suspect]
     Active Substance: MORPHINE SULFATE
     Dosage: 0.69 MICROGRAM/DAY
     Route: 065
     Dates: start: 20230120, end: 20230125
  3. MORPHINE SULFATE [Suspect]
     Active Substance: MORPHINE SULFATE
     Dosage: 0.35 MG/DAY
     Route: 065
     Dates: start: 20230125
  4. BUPIVACAINE [Suspect]
     Active Substance: BUPIVACAINE
     Indication: Cancer pain
     Dosage: 2 MILLIGRAM, DAILY
     Route: 065
  5. BUPIVACAINE [Suspect]
     Active Substance: BUPIVACAINE
     Dosage: 1.4 MG/DAY
     Route: 065
  6. BUPIVACAINE [Suspect]
     Active Substance: BUPIVACAINE
     Dosage: 2 MICROGRAM/DAY
     Route: 065
  7. BUPIVACAINE [Suspect]
     Active Substance: BUPIVACAINE
     Dosage: 2.4 MICROGRAM/DAY
     Route: 065
     Dates: start: 20230120, end: 20230125
  8. BUPIVACAINE [Suspect]
     Active Substance: BUPIVACAINE
     Dosage: 1.4 MICROGRAM, DAY
     Route: 065
     Dates: start: 20230125
  9. ZICONOTIDE [Suspect]
     Active Substance: ZICONOTIDE
     Indication: Cancer pain
     Dosage: 0.7 MICROGRAM/DAY
     Route: 038
     Dates: start: 20230118, end: 20230120
  10. ZICONOTIDE [Suspect]
     Active Substance: ZICONOTIDE
     Dosage: 0.9 MICROGRAM/DAY
     Route: 038
     Dates: start: 20230120, end: 20230125
  11. ZICONOTIDE [Suspect]
     Active Substance: ZICONOTIDE
     Dosage: 0.49 MICROGRAM/DAY
     Route: 038
     Dates: start: 20230125
  12. MORPHINE [Concomitant]
     Active Substance: MORPHINE
     Indication: Pain
     Dosage: 560 MG/ DAY; DELAYED RELEASE ORAL MORPHINE
     Route: 048
  13. MORPHINE [Concomitant]
     Active Substance: MORPHINE
     Indication: Pain
     Dosage: 80 MG; 2-3 RESCUES/DAY OF ORAL MORPHINE RELEASE
     Route: 048
  14. FENTANYL [Concomitant]
     Active Substance: FENTANYL\FENTANYL CITRATE
     Indication: Pain
     Dosage: 200 MCG
     Route: 060

REACTIONS (4)
  - Affect lability [Recovered/Resolved]
  - Suicidal ideation [Recovered/Resolved]
  - Asthenia [Recovered/Resolved]
  - Off label use [Not Recovered/Not Resolved]

NARRATIVE: CASE EVENT DATE: 20230118
